FAERS Safety Report 4862375-9 (Version None)
Quarter: 2005Q4

REPORT INFORMATION
  Report Type: 
  Country: None (occurrence: None)
  Receive Date: 20051221
  Receipt Date: 20051209
  Transmission Date: 20060501
  Serious: Yes (Other)
  Sender: FDA-Public Use
  Company Number: CA-BRISTOL-MYERS SQUIBB COMPANY-13218953

PATIENT
  Age: 83 Year
  Sex: Male

DRUGS (16)
  1. TEQUIN [Suspect]
  2. ATROVENT [Concomitant]
     Route: 055
  3. CASODEX [Concomitant]
  4. CEFTRIAXONE [Concomitant]
  5. COVERSYL [Concomitant]
  6. ELTROXIN [Concomitant]
  7. FLOVENT [Concomitant]
  8. HUMULIN R [Concomitant]
  9. LORAZEPAM [Concomitant]
  10. MORPHINE [Concomitant]
  11. NOVASEN [Concomitant]
  12. SPIRIVA [Concomitant]
  13. SYMBICORT [Concomitant]
  14. TERAZOSIN [Concomitant]
  15. TIAZAC [Concomitant]
  16. VENTOLIN [Concomitant]

REACTIONS (1)
  - HYPOGLYCAEMIA [None]
